FAERS Safety Report 15890488 (Version 2)
Quarter: 2019Q1

REPORT INFORMATION
  Report Type: Report from Study
  Country: None (occurrence: US)
  Receive Date: 20190130
  Receipt Date: 20190203
  Transmission Date: 20190417
  Serious: Yes (Hospitalization, Other)
  Sender: FDA-Public Use
  Company Number: US-ABBVIE-18K-163-2558820-00

PATIENT
  Age: 43 Year
  Sex: Female
  Weight: 118.04 kg

DRUGS (2)
  1. HUMIRA [Suspect]
     Active Substance: ADALIMUMAB
     Indication: RHEUMATOID ARTHRITIS
     Route: 058
  2. HUMIRA [Suspect]
     Active Substance: ADALIMUMAB
     Route: 058
     Dates: start: 20181111

REACTIONS (5)
  - Device issue [Recovering/Resolving]
  - Brain operation [Unknown]
  - Fatigue [Unknown]
  - Dizziness [Unknown]
  - Immunosuppression [Unknown]

NARRATIVE: CASE EVENT DATE: 2018
